FAERS Safety Report 7493281-1 (Version None)
Quarter: 2011Q2

REPORT INFORMATION
  Report Type: 
  Country: None (occurrence: None)
  Receive Date: 20110520
  Receipt Date: 20110412
  Transmission Date: 20111010
  Serious: Yes (Hospitalization)
  Sender: FDA-Public Use
  Company Number: US-BAYER-201041562NA

PATIENT
  Sex: Female
  Weight: 58.05 kg

DRUGS (10)
  1. YAZ [Suspect]
     Dosage: UNK
     Dates: start: 20080301, end: 20100101
  2. YASMIN [Suspect]
     Indication: PREMENSTRUAL SYNDROME
  3. ZOLOFT [Concomitant]
  4. MULTI-VITAMIN [Concomitant]
  5. YASMIN [Suspect]
     Indication: ACNE
     Dosage: UNK
     Dates: start: 20080301, end: 20100101
  6. DOXYCYCLINE [Concomitant]
  7. MAGNESIUM [MAGNESIUM] [Concomitant]
  8. DIFLUCAN [Concomitant]
  9. DROSPIRENONE AND ETHINYL ESTRADIOL [Suspect]
  10. MALARONE [Concomitant]

REACTIONS (1)
  - GALLBLADDER INJURY [None]
